FAERS Safety Report 14853293 (Version 2)
Quarter: 2018Q3

REPORT INFORMATION
  Report Type: Spontaneous
  Country: US (occurrence: US)
  Receive Date: 20180507
  Receipt Date: 20180806
  Transmission Date: 20181010
  Serious: No
  Sender: FDA-Public Use
  Company Number: US-CELGENEUS-USA-20180500775

PATIENT
  Sex: Female

DRUGS (4)
  1. OTEZLA [Suspect]
     Active Substance: APREMILAST
     Indication: PSORIASIS
     Dosage: 60 MILLIGRAM
     Route: 048
     Dates: start: 20180108, end: 20180501
  2. HUMIRA [Concomitant]
     Active Substance: ADALIMUMAB
     Indication: PRODUCT USED FOR UNKNOWN INDICATION
     Route: 065
  3. ENBREL [Concomitant]
     Active Substance: ETANERCEPT
     Indication: PRODUCT USED FOR UNKNOWN INDICATION
     Route: 065
  4. OTEZLA [Suspect]
     Active Substance: APREMILAST
     Indication: PSORIATIC ARTHROPATHY

REACTIONS (7)
  - Arthralgia [Unknown]
  - Diarrhoea [Unknown]
  - Nausea [Recovered/Resolved with Sequelae]
  - Headache [Recovered/Resolved with Sequelae]
  - Abdominal discomfort [Recovered/Resolved with Sequelae]
  - Therapeutic response decreased [Unknown]
  - Drug effect decreased [Unknown]

NARRATIVE: CASE EVENT DATE: 2018
